FAERS Safety Report 11898723 (Version 3)
Quarter: 2019Q4

REPORT INFORMATION
  Report Type: Spontaneous
  Country: FR (occurrence: FR)
  Receive Date: 20160108
  Receipt Date: 20191029
  Transmission Date: 20200122
  Serious: Yes (Hospitalization, Other)
  Sender: FDA-Public Use
  Company Number: FR-BIOVITRUM-2016FR0002

PATIENT
  Age: 0 Year
  Sex: Male
  Weight: 2.9 kg

DRUGS (14)
  1. PERFALGAN [Suspect]
     Active Substance: ACETAMINOPHEN
     Indication: PRODUCT USED FOR UNKNOWN INDICATION
     Route: 064
     Dates: start: 20151129, end: 201511
  2. PREDNISONE. [Suspect]
     Active Substance: PREDNISONE
     Indication: PRODUCT USED FOR UNKNOWN INDICATION
     Route: 064
     Dates: start: 20151128, end: 201511
  3. PREDNISONE. [Suspect]
     Active Substance: PREDNISONE
     Route: 064
     Dates: start: 2015, end: 20151117
  4. ACICLOVIR [Concomitant]
     Active Substance: ACYCLOVIR
     Indication: PROPHYLAXIS AGAINST HIV INFECTION
  5. ETANERCEPT [Concomitant]
     Active Substance: ETANERCEPT
     Indication: PRODUCT USED FOR UNKNOWN INDICATION
  6. KINERET [Suspect]
     Active Substance: ANAKINRA
     Indication: PRODUCT USED FOR UNKNOWN INDICATION
     Route: 064
     Dates: end: 20151008
  7. TOCILIZUMAB. [Suspect]
     Active Substance: TOCILIZUMAB
     Indication: PRODUCT USED FOR UNKNOWN INDICATION
     Route: 064
     Dates: start: 20151012, end: 20151109
  8. COLCHICINE. [Concomitant]
     Active Substance: COLCHICINE
     Route: 064
     Dates: start: 20151128, end: 201511
  9. KINERET [Suspect]
     Active Substance: ANAKINRA
     Route: 064
     Dates: start: 2015, end: 20151104
  10. CLAIRYG [Suspect]
     Active Substance: HUMAN IMMUNOGLOBULIN G
     Indication: PRODUCT USED FOR UNKNOWN INDICATION
     Route: 064
     Dates: start: 20151129, end: 201511
  11. CORTICOSTEROID [Concomitant]
     Active Substance: CORTICOSTEROID NOS
     Route: 064
     Dates: end: 20151117
  12. CIMZIA [Suspect]
     Active Substance: CERTOLIZUMAB PEGOL
     Indication: PRODUCT USED FOR UNKNOWN INDICATION
     Route: 064
     Dates: start: 20151118, end: 201511
  13. COLCHICINE. [Concomitant]
     Active Substance: COLCHICINE
     Indication: PRODUCT USED FOR UNKNOWN INDICATION
     Route: 064
     Dates: start: 2015, end: 20151117
  14. CLAIRYG [Suspect]
     Active Substance: HUMAN IMMUNOGLOBULIN G
     Route: 064
     Dates: start: 20151128, end: 20151128

REACTIONS (9)
  - Pyrexia [Recovering/Resolving]
  - Thrombocytopenia [Recovering/Resolving]
  - Premature baby [Unknown]
  - Hepatosplenomegaly [Recovering/Resolving]
  - Congenital herpes simplex infection [Unknown]
  - Foetal exposure during pregnancy [Unknown]
  - Bradycardia foetal [Recovered/Resolved]
  - Neonatal gastrointestinal disorder [Recovering/Resolving]
  - Hypocalcaemia [Recovered/Resolved]

NARRATIVE: CASE EVENT DATE: 2015
